FAERS Safety Report 5089816-9 (Version None)
Quarter: 2006Q3

REPORT INFORMATION
  Report Type: 
  Country: None (occurrence: None)
  Receive Date: 20060823
  Receipt Date: 20060808
  Transmission Date: 20061208
  Serious: Yes (Death, Congenital Anomaly, Other)
  Sender: FDA-Public Use
  Company Number: 2006-BP-07474BP

PATIENT
  Sex: Female
  Weight: 1.36 kg

DRUGS (8)
  1. VIRAMUNE [Suspect]
     Indication: HIV INFECTION
     Dosage: 400 MG, IU
     Route: 015
     Dates: start: 20011107
  2. TRUVADA [Suspect]
     Dosage: SEE TEXT (, 200MG/300MG), IU
     Route: 015
     Dates: start: 20050101
  3. ZIDOVUDINE [Suspect]
     Dosage: SEE TEXT (, 2MG/KG X 1 HOUR), IV
     Route: 042
     Dates: start: 20060506, end: 20060506
  4. WELLBUTRIN [Concomitant]
  5. SEROQUEL [Concomitant]
  6. COCAINE (COCAINE) [Concomitant]
  7. TOBACCO (ALL OTHER THERAPEUTIC PRODUCTS) [Concomitant]
  8. AMOXICILLIAN (ALL OTHER THERAPEUTIC PRODUCTS) [Concomitant]

REACTIONS (18)
  - BREECH PRESENTATION [None]
  - CAESAREAN SECTION [None]
  - CONGENITAL SYPHILIS [None]
  - DEATH NEONATAL [None]
  - DRUG EXPOSURE DURING PREGNANCY [None]
  - GASTROINTESTINAL DISORDER [None]
  - HYDROPS FOETALIS [None]
  - INTRA-UTERINE DEATH [None]
  - KYPHOSIS [None]
  - MICROCEPHALY [None]
  - MULTIPLE CONGENITAL ABNORMALITIES [None]
  - OLIGOHYDRAMNIOS [None]
  - PERICARDIAL EFFUSION [None]
  - PLEURAL EFFUSION [None]
  - PREMATURE BABY [None]
  - PULMONARY HYPOPLASIA [None]
  - SINGLE UMBILICAL ARTERY [None]
  - UMBILICAL CORD PROLAPSE [None]
